FAERS Safety Report 19744824 (Version 1)
Quarter: 2021Q3

REPORT INFORMATION
  Report Type: Spontaneous
  Country: PK (occurrence: PK)
  Receive Date: 20210825
  Receipt Date: 20210825
  Transmission Date: 20211014
  Serious: Yes (Other)
  Sender: FDA-Public Use
  Company Number: PK-PFIZER INC-202101086531

PATIENT
  Age: 24 Year
  Sex: Male

DRUGS (3)
  1. AZITHROMYCIN ANHYDROUS. [Suspect]
     Active Substance: AZITHROMYCIN ANHYDROUS
     Dosage: UNK
     Route: 048
  2. CEFTRIAXONE. [Suspect]
     Active Substance: CEFTRIAXONE
     Dosage: UNK
     Route: 042
  3. CEFPODOXIME [Suspect]
     Active Substance: CEFPODOXIME
     Dosage: UNK
     Route: 048

REACTIONS (1)
  - Eosinophilic pneumonia [Recovered/Resolved]
